FAERS Safety Report 4978949-0 (Version None)
Quarter: 2006Q2

REPORT INFORMATION
  Report Type: 
  Country: None (occurrence: None)
  Receive Date: 20060419
  Receipt Date: 20060419
  Transmission Date: 20061013
  Serious: Yes (Hospitalization)
  Sender: FDA-Public Use
  Company Number: None

PATIENT
  Age: 64 Year
  Sex: Female
  Weight: 78.4723 kg

DRUGS (5)
  1. ZOCOR [Suspect]
     Indication: HYPERLIPIDAEMIA
     Dosage: 20 MG QD PO
     Route: 048
     Dates: start: 20060313, end: 20060404
  2. TOPROL-XL [Concomitant]
  3. DIOVAN [Concomitant]
  4. NEXIUM [Concomitant]
  5. FOSAMAX [Concomitant]

REACTIONS (2)
  - ARTHRALGIA [None]
  - ASTHENIA [None]
